FAERS Safety Report 8537805-1 (Version None)
Quarter: 2012Q3

REPORT INFORMATION
  Report Type: 
  Country: None (occurrence: None)
  Receive Date: 20120725
  Receipt Date: 20120719
  Transmission Date: 20120928
  Serious: Yes (Hospitalization, Other)
  Sender: FDA-Public Use
  Company Number: AU-ROXANE LABORATORIES, INC.-2012-RO-01569RO

PATIENT
  Age: 22 Year
  Sex: Male

DRUGS (1)
  1. AZATHIOPRINE [Suspect]
     Indication: CROHN'S DISEASE
     Dosage: 150 MG

REACTIONS (4)
  - PNEUMONITIS [None]
  - CYTOMEGALOVIRUS VIRAEMIA [None]
  - HISTIOCYTOSIS HAEMATOPHAGIC [None]
  - HEPATITIS [None]
